FAERS Safety Report 6038182-0 (Version None)
Quarter: 2009Q1

REPORT INFORMATION
  Report Type: 
  Country: None (occurrence: None)
  Receive Date: 20090115
  Receipt Date: 20090105
  Transmission Date: 20090719
  Serious: Yes (Other)
  Sender: FDA-Public Use
  Company Number: PHEH2009US00465

PATIENT
  Sex: Female

DRUGS (1)
  1. GENTEAL MILD LUBRICANT EYE DROPS (NVO) [Suspect]
     Dosage: UNK, UNK
     Route: 047

REACTIONS (3)
  - GLAUCOMA [None]
  - VISUAL ACUITY REDUCED [None]
  - VISUAL FIELD DEFECT [None]
